FAERS Safety Report 9783506 (Version 1)
Quarter: 2013Q4

REPORT INFORMATION
  Report Type: Spontaneous
  Country: US (occurrence: None)
  Receive Date: 20131223
  Receipt Date: 20131223
  Transmission Date: 20140711
  Serious: Yes (Other)
  Sender: FDA-Public Use
  Company Number: LMI-2013-00519

PATIENT
  Age: 84 Year
  Sex: Male
  Weight: 59.88 kg

DRUGS (8)
  1. PERFLUTREN [Suspect]
     Indication: ECHOCARDIOGRAM
     Dosage: 1.7 ML DEFINITY DILUTED WITH 8.3 ML NORMAL SALINE (3.5ML), INTRAVENOUS BOLUS
     Route: 040
     Dates: start: 20131211, end: 20131211
  2. COREG (CARVEDILOL) [Concomitant]
  3. LASIX (FUROSEMIDE) [Concomitant]
  4. ZAROXOLYN (METOLAZONE) [Concomitant]
  5. BACTROBAN (MUPIROCIN) [Concomitant]
  6. K-DUR )POTASSIUM CHLORIDE) [Concomitant]
  7. SYNTHROID (LEVOTHYROXINE SODIUM) [Concomitant]
  8. COUMADIN (WARFARIN SODIUM) [Concomitant]

REACTIONS (5)
  - Hypotension [None]
  - Oxygen saturation decreased [None]
  - Dyspnoea [None]
  - Urticaria [None]
  - Hypersensitivity [None]
